FAERS Safety Report 7969939-4 (Version None)
Quarter: 2011Q4

REPORT INFORMATION
  Report Type: 
  Country: None (occurrence: None)
  Receive Date: 20111212
  Receipt Date: 20111130
  Transmission Date: 20120403
  Serious: Yes (Hospitalization, Other)
  Sender: FDA-Public Use
  Company Number: JP-PFIZER INC-2011283835

PATIENT
  Age: 60 Year
  Sex: Female

DRUGS (3)
  1. AZACITIDINE [Suspect]
     Indication: MYELODYSPLASTIC SYNDROME
     Dosage: 100 MG, 1X/DAY
     Route: 041
     Dates: start: 20111026, end: 20111101
  2. GARENOXACIN MESYLATE [Suspect]
     Indication: PROPHYLAXIS
     Dosage: 400 MG, 1X/DAY
     Route: 048
     Dates: start: 20111026, end: 20111113
  3. DIFLUCAN [Suspect]
     Indication: PROPHYLAXIS
     Dosage: 200 MG, 1X/DAY
     Route: 048
     Dates: start: 20111026, end: 20111113

REACTIONS (1)
  - INTERSTITIAL LUNG DISEASE [None]
